FAERS Safety Report 9341826 (Version 1)
Quarter: 2013Q2

REPORT INFORMATION
  Report Type: Spontaneous
  Country: US (occurrence: None)
  Receive Date: 20130606
  Receipt Date: 20130606
  Transmission Date: 20140414
  Serious: Yes (Death)
  Sender: FDA-Public Use
  Company Number: 1736941

PATIENT
  Age: 35 Year
  Sex: Male
  Weight: 88.64 kg

DRUGS (2)
  1. HEPARIN SODIUM [Suspect]
     Indication: ANTICOAGULANT THERAPY
     Dosage: APPROXIMATELY 2 ML IN CATHETER FOLLOWING ARPHERESIS PROCEDURE
     Dates: start: 20130522
  2. (ALBUMIN) [Concomitant]

REACTIONS (1)
  - Respiratory failure [None]
